FAERS Safety Report 10797284 (Version 2)
Quarter: 2015Q1

REPORT INFORMATION
  Report Type: Spontaneous
  Country: US (occurrence: US)
  Receive Date: 20150216
  Receipt Date: 20150323
  Transmission Date: 20150721
  Serious: Yes (Death)
  Sender: FDA-Public Use
  Company Number: US-ASTRAZENECA-2015SE12228

PATIENT
  Age: 105 Day
  Sex: Male
  Weight: 3.2 kg

DRUGS (2)
  1. SYNAGIS [Suspect]
     Active Substance: PALIVIZUMAB
     Indication: TRACHEOSTOMY
     Route: 030
     Dates: start: 20141202, end: 20150124
  2. SYNAGIS [Suspect]
     Active Substance: PALIVIZUMAB
     Indication: VENTRICULAR SEPTAL DEFECT
     Route: 030
     Dates: start: 20141202, end: 20150124

REACTIONS (1)
  - Death [Fatal]

NARRATIVE: CASE EVENT DATE: 20150125
